FAERS Safety Report 9026073 (Version 2)
Quarter: 2013Q1

REPORT INFORMATION
  Report Type: Spontaneous
  Country: US (occurrence: US)
  Receive Date: 20130122
  Receipt Date: 20130221
  Transmission Date: 20140127
  Serious: Yes (Hospitalization)
  Sender: FDA-Public Use
  Company Number: US-ASTRAZENECA-2013SE03191

PATIENT
  Age: 81 Year
  Sex: Female
  Weight: 63.5 kg

DRUGS (6)
  1. PULMICORT FLEXHALER [Suspect]
     Indication: ASTHMA
     Route: 055
     Dates: start: 201211
  2. BABY ASPIRIN [Concomitant]
  3. THEOPHYLLINE [Concomitant]
  4. ALBUTEROL [Concomitant]
     Dosage: THREE TIMES A DAY
  5. ASTHMACORT [Concomitant]
  6. QVAR [Concomitant]
     Dates: end: 201211

REACTIONS (3)
  - Dyspnoea [Recovering/Resolving]
  - Dyspnoea exertional [Recovered/Resolved]
  - Weight decreased [Unknown]
